FAERS Safety Report 5363323-8 (Version None)
Quarter: 2007Q2

REPORT INFORMATION
  Report Type: 
  Country: None (occurrence: None)
  Receive Date: 20070620
  Receipt Date: 20070615
  Transmission Date: 20071010
  Serious: Yes (Death)
  Sender: FDA-Public Use
  Company Number: US-NOVOPROD-264603

PATIENT
  Age: 55 Year
  Sex: Male

DRUGS (3)
  1. NOVOSEVEN [Suspect]
     Indication: CEREBRAL HAEMATOMA
     Dosage: 80 UG/KG, UNK
     Route: 042
  2. CRYOPRECIPITATES [Concomitant]
  3. PLATELETS [Concomitant]

REACTIONS (1)
  - CEREBRAL INFARCTION [None]
